FAERS Safety Report 4693479-1 (Version None)
Quarter: 2005Q2

REPORT INFORMATION
  Report Type: 
  Country: None (occurrence: None)
  Receive Date: 20050615
  Receipt Date: 20050601
  Transmission Date: 20051028
  Serious: Yes (Disabling, Other)
  Sender: FDA-Public Use
  Company Number: 2005085349

PATIENT
  Age: 60 Year
  Sex: Female
  Weight: 70.3075 kg

DRUGS (3)
  1. CELEBREX [Suspect]
     Indication: ARTHRITIS
     Dates: start: 20000101
  2. BEXTRA [Suspect]
     Indication: ARTHRITIS
     Dosage: 20 MG (20 MG, 1 IN 1 D)
     Dates: end: 20050406
  3. WARFARIN SODIUM [Concomitant]

REACTIONS (10)
  - ARTHROPATHY [None]
  - BLISTER [None]
  - DRUG INEFFECTIVE [None]
  - DRY EYE [None]
  - FURUNCLE [None]
  - LEG AMPUTATION [None]
  - NERVE INJURY [None]
  - PAIN [None]
  - SKIN EXFOLIATION [None]
  - SWELLING [None]
